FAERS Safety Report 24818097 (Version 1)
Quarter: 2025Q1

REPORT INFORMATION
  Report Type: Spontaneous
  Country: US (occurrence: US)
  Receive Date: 20250108
  Receipt Date: 20250108
  Transmission Date: 20250409
  Serious: Yes (Other)
  Sender: AMGEN
  Company Number: US-AMGEN-USASP2024257042

PATIENT
  Age: 70 Year
  Sex: Male

DRUGS (4)
  1. FILGRASTIM [Suspect]
     Active Substance: FILGRASTIM
     Indication: Neutropenic colitis
     Route: 065
  2. CAPECITABINE [Concomitant]
     Active Substance: CAPECITABINE
  3. OXALIPLATIN [Concomitant]
     Active Substance: OXALIPLATIN
  4. URIDINE TRIACETATE [Concomitant]
     Active Substance: URIDINE TRIACETATE

REACTIONS (3)
  - General physical health deterioration [Unknown]
  - Neutrophil count decreased [Unknown]
  - Hypotension [Unknown]
